FAERS Safety Report 17431950 (Version 8)
Quarter: 2022Q2

REPORT INFORMATION
  Report Type: Spontaneous
  Country: US (occurrence: US)
  Receive Date: 20200218
  Receipt Date: 20220613
  Transmission Date: 20220721
  Serious: No
  Sender: FDA-Public Use
  Company Number: NVSC2020US043290

PATIENT
  Sex: Female

DRUGS (10)
  1. TAFINLAR [Suspect]
     Active Substance: DABRAFENIB MESYLATE
     Indication: Brain neoplasm malignant
     Dosage: 75 MG, BID
     Route: 048
     Dates: start: 20200111
  2. TAFINLAR [Suspect]
     Active Substance: DABRAFENIB MESYLATE
     Dosage: 50 MG, BID
     Route: 048
     Dates: start: 20200111
  3. TAFINLAR [Suspect]
     Active Substance: DABRAFENIB MESYLATE
     Dosage: 50 MG, Q12H
     Route: 048
     Dates: start: 20200113
  4. TAFINLAR [Suspect]
     Active Substance: DABRAFENIB MESYLATE
     Dosage: 75 MG, Q12H
     Route: 048
     Dates: start: 20200113
  5. TAFINLAR [Suspect]
     Active Substance: DABRAFENIB MESYLATE
     Dosage: 50 MG, Q12H
     Route: 048
     Dates: start: 202001
  6. TAFINLAR [Suspect]
     Active Substance: DABRAFENIB MESYLATE
     Dosage: 75 MG, Q12H
     Route: 048
     Dates: start: 202001
  7. MEKINIST [Suspect]
     Active Substance: TRAMETINIB DIMETHYL SULFOXIDE
     Indication: Brain neoplasm malignant
     Dosage: 1.5 MG, QD
     Route: 048
     Dates: start: 20200115
  8. MEKINIST [Suspect]
     Active Substance: TRAMETINIB DIMETHYL SULFOXIDE
     Dosage: UNK
     Route: 065
  9. MEKINIST [Suspect]
     Active Substance: TRAMETINIB DIMETHYL SULFOXIDE
     Dosage: 75 MG, BID
     Route: 048
  10. MEKINIST [Suspect]
     Active Substance: TRAMETINIB DIMETHYL SULFOXIDE
     Dosage: 1.5 MG, QD
     Route: 048
     Dates: start: 202001

REACTIONS (7)
  - Influenza like illness [Unknown]
  - Pruritus [Unknown]
  - Dry skin [Unknown]
  - Pyrexia [Unknown]
  - Nausea [Unknown]
  - Product use in unapproved indication [Unknown]
  - Product dose omission issue [Unknown]
